FAERS Safety Report 11079412 (Version 3)
Quarter: 2016Q2

REPORT INFORMATION
  Report Type: Spontaneous
  Country: RU (occurrence: RU)
  Receive Date: 20150430
  Receipt Date: 20160427
  Transmission Date: 20160815
  Serious: Yes (Hospitalization, Other)
  Sender: FDA-Public Use
  Company Number: RU-GLAXOSMITHKLINE-RU2015GSK054554

PATIENT

DRUGS (7)
  1. LAMIVUDINE. [Suspect]
     Active Substance: LAMIVUDINE
     Indication: HIV INFECTION
     Dosage: 150 MG, BID
     Dates: start: 20150407
  2. OLITID [Suspect]
     Active Substance: ABACAVIR SULFATE
     Indication: HIV INFECTION
     Dosage: UNK
     Dates: start: 20150624
  3. ISENTRESS [Suspect]
     Active Substance: RALTEGRAVIR POTASSIUM
     Indication: HIV INFECTION
     Dosage: UNK
     Route: 065
     Dates: start: 20150624
  4. KALETRA [Suspect]
     Active Substance: LOPINAVIR\RITONAVIR
     Indication: HIV INFECTION
     Dosage: UNK
     Dates: start: 2009, end: 20150405
  5. RIBAVIRIN. [Suspect]
     Active Substance: RIBAVIRIN
     Indication: HIV INFECTION
     Dosage: UNK
     Dates: start: 20150624
  6. STOCRIN [Suspect]
     Active Substance: EFAVIRENZ
     Indication: HIV INFECTION
     Dosage: UNK
  7. COMBIVIR [Suspect]
     Active Substance: LAMIVUDINE\ZIDOVUDINE
     Indication: HIV INFECTION
     Dosage: UNK
     Dates: start: 2009, end: 20150405

REACTIONS (19)
  - Hepatic cirrhosis [Unknown]
  - Nausea [Recovered/Resolved]
  - Insomnia [Unknown]
  - Platelet count decreased [Not Recovered/Not Resolved]
  - Urticaria [Unknown]
  - Haemoglobin decreased [Not Recovered/Not Resolved]
  - Lipodystrophy acquired [Not Recovered/Not Resolved]
  - Euphoric mood [Recovered/Resolved]
  - Abnormal dreams [Unknown]
  - Dizziness [Unknown]
  - Memory impairment [Unknown]
  - Toxic skin eruption [Recovering/Resolving]
  - Weight decreased [Unknown]
  - Jaundice [Recovered/Resolved]
  - Pruritus [Recovered/Resolved]
  - Tearfulness [Recovered/Resolved]
  - Negative thoughts [Recovered/Resolved]
  - Diarrhoea [Recovered/Resolved]
  - Exposure during pregnancy [Recovered/Resolved]

NARRATIVE: CASE EVENT DATE: 2009
